FAERS Safety Report 23679462 (Version 1)
Quarter: 2024Q1

REPORT INFORMATION
  Report Type: Spontaneous
  Country: US (occurrence: US)
  Receive Date: 20240327
  Receipt Date: 20240327
  Transmission Date: 20240409
  Serious: Yes (Death, Hospitalization, Other)
  Sender: FDA-Public Use
  Company Number: US-AMGEN-USASP2024058889

PATIENT
  Age: 66 Year
  Sex: Female

DRUGS (3)
  1. XGEVA [Suspect]
     Active Substance: DENOSUMAB
     Indication: Plasma cell myeloma
     Dosage: UNK, QMO
     Route: 065
  2. LENALIDOMIDE [Concomitant]
     Active Substance: LENALIDOMIDE
     Indication: Plasma cell myeloma
     Route: 065
  3. DEXAMETHASONE [Concomitant]
     Active Substance: DEXAMETHASONE
     Indication: Plasma cell myeloma
     Route: 065

REACTIONS (9)
  - Death [Fatal]
  - Acute kidney injury [Unknown]
  - Lactic acidosis [Unknown]
  - Pancytopenia [Unknown]
  - Colitis [Unknown]
  - Escherichia bacteraemia [Unknown]
  - Septic shock [Unknown]
  - Culture urine positive [Unknown]
  - General physical health deterioration [Unknown]
